FAERS Safety Report 19125211 (Version 2)
Quarter: 2021Q2

REPORT INFORMATION
  Report Type: Spontaneous
  Country: US (occurrence: US)
  Receive Date: 20210412
  Receipt Date: 20210625
  Transmission Date: 20210717
  Serious: No
  Sender: FDA-Public Use
  Company Number: US-PFIZER INC-2021351053

PATIENT
  Age: 56 Year
  Sex: Male

DRUGS (2)
  1. COVID?19 VACCINE [Concomitant]
  2. XELJANZ [Suspect]
     Active Substance: TOFACITINIB CITRATE
     Dosage: 5 MG
     Dates: start: 20210302

REACTIONS (4)
  - Fatigue [Unknown]
  - Headache [Unknown]
  - Dyspepsia [Unknown]
  - Therapeutic product effect delayed [Unknown]

NARRATIVE: CASE EVENT DATE: 202103
